FAERS Safety Report 9087901 (Version 2)
Quarter: 2013Q1

REPORT INFORMATION
  Report Type: Report from Study
  Country: DE (occurrence: DE)
  Receive Date: 20130201
  Receipt Date: 20130219
  Transmission Date: 20140127
  Serious: Yes (Hospitalization, Disabling, Other)
  Sender: FDA-Public Use
  Company Number: DE-ROCHE-1182162

PATIENT
  Age: 76 Year
  Sex: Male

DRUGS (1)
  1. VEMURAFENIB [Suspect]
     Indication: METASTATIC MALIGNANT MELANOMA
     Route: 048
     Dates: start: 20120306, end: 201212

REACTIONS (9)
  - Epilepsy [Recovered/Resolved with Sequelae]
  - Squamous cell carcinoma [Unknown]
  - Photosensitivity reaction [Unknown]
  - Xeroderma [Unknown]
  - Keratosis follicular [Unknown]
  - Hyperkeratosis [Unknown]
  - Hyperkeratosis [Unknown]
  - Fatigue [Unknown]
  - Decreased appetite [Unknown]
